FAERS Safety Report 8191923-9 (Version None)
Quarter: 2012Q1

REPORT INFORMATION
  Report Type: 
  Country: None (occurrence: None)
  Receive Date: 20120307
  Receipt Date: 20120301
  Transmission Date: 20120608
  Serious: Yes (Death, Hospitalization)
  Sender: FDA-Public Use
  Company Number: PHHY2012DE018233

PATIENT
  Sex: Female

DRUGS (5)
  1. AMLODIPINE [Concomitant]
  2. RASILEZ [Suspect]
     Dosage: 150 MG, UNK
     Route: 048
     Dates: end: 20120101
  3. MICARDIS [Concomitant]
  4. METOPROLOL SUCCINATE [Concomitant]
  5. FUROSEMIDE [Concomitant]

REACTIONS (2)
  - DEATH [None]
  - HYPERTENSIVE CRISIS [None]
